FAERS Safety Report 6343078-0 (Version None)
Quarter: 2009Q3

REPORT INFORMATION
  Report Type: 
  Country: None (occurrence: None)
  Receive Date: 20090908
  Receipt Date: 20090828
  Transmission Date: 20100115
  Serious: Yes (Disabling, Other)
  Sender: FDA-Public Use
  Company Number: US-ASTRAZENECA-2009UW17487

PATIENT
  Age: 82 Year
  Sex: Female
  Weight: 80.7 kg

DRUGS (12)
  1. SYMBICORT [Suspect]
     Indication: CHRONIC OBSTRUCTIVE PULMONARY DISEASE
     Dosage: 80/4.5 2 PUFFS TWICE DAILY
     Route: 055
     Dates: start: 20090526, end: 20090601
  2. SYMBICORT [Suspect]
     Indication: ASTHMA
     Dosage: 80/4.5 2 PUFFS TWICE DAILY
     Route: 055
     Dates: start: 20090526, end: 20090601
  3. SYMBICORT [Suspect]
     Dosage: 160 / 4.5 2 PUFFS TWICE DAILY
     Route: 055
  4. SYMBICORT [Suspect]
     Dosage: 160 / 4.5 2 PUFFS TWICE DAILY
     Route: 055
  5. ACCUPRIL [Concomitant]
  6. TRIAMTERENE AND HYDROCHLOROTHIAZIDE [Concomitant]
     Dosage: 37.5 / 25 MG
  7. FORADIL [Concomitant]
     Dosage: STANDARD DOSE
  8. ZYRTEC [Concomitant]
  9. SPIRIVA [Concomitant]
  10. OMEPRAZOLE [Concomitant]
  11. PROAIR HFA [Concomitant]
  12. SINGULAIR [Concomitant]
     Route: 065

REACTIONS (5)
  - ASTHENIA [None]
  - DIZZINESS [None]
  - FALL [None]
  - GAIT DISTURBANCE [None]
  - HYPERTENSION [None]
